FAERS Safety Report 18988769 (Version 2)
Quarter: 2021Q1

REPORT INFORMATION
  Report Type: Other
  Country: US (occurrence: US)
  Receive Date: 20210309
  Receipt Date: 20210310
  Transmission Date: 20210420
  Serious: Yes (Death)
  Sender: FDA-Public Use
  Company Number: US-ROCHE-2785117

PATIENT
  Sex: Male
  Weight: 114.2 kg

DRUGS (18)
  1. ASPIRIN. [Concomitant]
     Active Substance: ASPIRIN
     Dosage: 81 MG TABLET.
  2. ATORVASTATIN [Concomitant]
     Active Substance: ATORVASTATIN
  3. GABAPENTIN. [Concomitant]
     Active Substance: GABAPENTIN
  4. METOPROLOL SUCCINATE. [Concomitant]
     Active Substance: METOPROLOL SUCCINATE
  5. OXYCODONE [Concomitant]
     Active Substance: OXYCODONE
  6. DULOXETINE. [Concomitant]
     Active Substance: DULOXETINE
  7. HUMULIN N [Concomitant]
     Active Substance: INSULIN HUMAN
  8. RANITIDINE. [Concomitant]
     Active Substance: RANITIDINE
  9. POTASSIUM CHLORIDE ER [Concomitant]
     Active Substance: POTASSIUM CHLORIDE
  10. SYNTHROID [Concomitant]
     Active Substance: LEVOTHYROXINE SODIUM
  11. DEXILANT [Concomitant]
     Active Substance: DEXLANSOPRAZOLE
  12. MOVANTIK [Concomitant]
     Active Substance: NALOXEGOL OXALATE
  13. GLIPIZIDE. [Concomitant]
     Active Substance: GLIPIZIDE
  14. JANUVIA [Concomitant]
     Active Substance: SITAGLIPTIN PHOSPHATE
  15. MORPHINE [Concomitant]
     Active Substance: MORPHINE
  16. ESBRIET [Suspect]
     Active Substance: PIRFENIDONE
     Indication: IDIOPATHIC PULMONARY FIBROSIS
     Route: 048
  17. CELEBREX [Concomitant]
     Active Substance: CELECOXIB
  18. DOXAZOSIN [Concomitant]
     Active Substance: DOXAZOSIN MESYLATE

REACTIONS (1)
  - Death [Fatal]
